FAERS Safety Report 7770732-6 (Version None)
Quarter: 2011Q3

REPORT INFORMATION
  Report Type: 
  Country: None (occurrence: None)
  Receive Date: 20110922
  Receipt Date: 20101103
  Transmission Date: 20111222
  Serious: No
  Sender: FDA-Public Use
  Company Number: US-ASTRAZENECA-2010SE52109

PATIENT
  Age: 51 Year
  Sex: Female
  Weight: 92.1 kg

DRUGS (5)
  1. SEROQUEL [Suspect]
     Route: 048
  2. SEROQUEL [Suspect]
     Route: 048
  3. SEROQUEL [Suspect]
     Indication: BIPOLAR I DISORDER
     Route: 048
  4. SEROQUEL [Suspect]
     Route: 048
  5. ZOMIG [Concomitant]
     Route: 048

REACTIONS (7)
  - TEARFULNESS [None]
  - DRUG DOSE OMISSION [None]
  - FRUSTRATION [None]
  - MENTAL DISORDER [None]
  - FEELING ABNORMAL [None]
  - INSOMNIA [None]
  - TREMOR [None]
